FAERS Safety Report 10787626 (Version 2)
Quarter: 2015Q2

REPORT INFORMATION
  Report Type: Spontaneous
  Country: US (occurrence: US)
  Receive Date: 20150212
  Receipt Date: 20150429
  Transmission Date: 20150821
  Serious: No
  Sender: FDA-Public Use
  Company Number: US-AMGEN-USASL2015011949

PATIENT
  Age: 68 Year
  Sex: Female

DRUGS (1)
  1. ENBREL [Suspect]
     Active Substance: ETANERCEPT
     Indication: RHEUMATOID ARTHRITIS
     Dosage: 50 MG, QWK
     Route: 058
     Dates: start: 20150126

REACTIONS (9)
  - Eye discharge [Unknown]
  - Injection site mass [Unknown]
  - Eye infection [Unknown]
  - Injection site pain [Unknown]
  - Eye pain [Unknown]
  - Dry eye [Unknown]
  - Injection site pruritus [Unknown]
  - Eye swelling [Unknown]
  - Injection site erythema [Unknown]

NARRATIVE: CASE EVENT DATE: 20150201
